FAERS Safety Report 6237993-6 (Version None)
Quarter: 2009Q2

REPORT INFORMATION
  Report Type: 
  Country: None (occurrence: None)
  Receive Date: 20090617
  Receipt Date: 20090519
  Transmission Date: 20091009
  Serious: Yes (Hospitalization)
  Sender: FDA-Public Use
  Company Number: 6051530

PATIENT
  Age: 76 Year
  Sex: Female

DRUGS (11)
  1. LEVOTHYROXINE SODIUM [Suspect]
     Indication: DRUG USE FOR UNKNOWN INDICATION
     Dosage: 1 DOSAGE FORMS
     Route: 048
  2. PREVISCAN (FLUINDIONE) [Suspect]
     Indication: DRUG USE FOR UNKNOWN INDICATION
     Dosage: 1 DF ONE DAY, 3/4 DF THE OTHER DAY
     Route: 048
     Dates: end: 20090210
  3. ASPIRIN [Suspect]
     Indication: DRUG USE FOR UNKNOWN INDICATION
     Dosage: 1 DOSAGE FORMS (1 DOSAGE FORMS, 1 IN 1 D)
     Route: 048
  4. CELECTOL [Concomitant]
  5. METFORMIN HCL [Concomitant]
  6. STALEVO 100 [Concomitant]
  7. CYMBALTA [Concomitant]
  8. SURMONTIL [Concomitant]
  9. VALIUM [Concomitant]
  10. NEXIUM [Concomitant]
  11. ACETAMINOPHEN [Concomitant]

REACTIONS (7)
  - ANAEMIA [None]
  - DRUG INTERACTION [None]
  - HAEMATURIA [None]
  - HYPOVOLAEMIC SHOCK [None]
  - INTERNATIONAL NORMALISED RATIO INCREASED [None]
  - SHOCK HAEMORRHAGIC [None]
  - URINARY TRACT INFECTION [None]
